FAERS Safety Report 9688591 (Version 1)
Quarter: 2013Q4

REPORT INFORMATION
  Report Type: Spontaneous
  Country: US (occurrence: US)
  Receive Date: 20131114
  Receipt Date: 20131114
  Transmission Date: 20140711
  Serious: No
  Sender: FDA-Public Use
  Company Number: US-PFIZER INC-2013324135

PATIENT
  Age: 16 Year
  Sex: Female

DRUGS (2)
  1. QUILLIVANT XR [Suspect]
     Indication: ATTENTION DEFICIT/HYPERACTIVITY DISORDER
     Dosage: 6 ML, UNK
  2. QUILLIVANT XR [Suspect]
     Dosage: 13.5 ML, UNK

REACTIONS (1)
  - Drug ineffective [Unknown]
